FAERS Safety Report 22396212 (Version 1)
Quarter: 2023Q2

REPORT INFORMATION
  Report Type: Spontaneous
  Country: US (occurrence: US)
  Receive Date: 20230601
  Receipt Date: 20230601
  Transmission Date: 20230722
  Serious: No
  Sender: FDA-Public Use
  Company Number: US-APIL-2314206US

PATIENT
  Sex: Female

DRUGS (1)
  1. LO LOESTRIN FE [Suspect]
     Active Substance: ETHINYL ESTRADIOL\NORETHINDRONE ACETATE
     Indication: Crohn^s disease
     Dosage: 1 DF, QD
     Dates: start: 2022

REACTIONS (3)
  - Off label use [Unknown]
  - Product dose omission issue [Unknown]
  - Nausea [Unknown]
